FAERS Safety Report 17255419 (Version 2)
Quarter: 2020Q1

REPORT INFORMATION
  Report Type: Spontaneous
  Country: US (occurrence: US)
  Receive Date: 20200110
  Receipt Date: 20200318
  Transmission Date: 20200409
  Serious: Yes (Hospitalization)
  Sender: FDA-Public Use
  Company Number: US-ROCHE-2518208

PATIENT
  Age: 47 Year
  Sex: Female

DRUGS (3)
  1. PULMOZYME [Suspect]
     Active Substance: DORNASE ALFA
     Dosage: 1MG/ML AMP*REFRIG?2.5MG/2.5ML
     Route: 055
     Dates: start: 2001
  2. PULMOZYME [Suspect]
     Active Substance: DORNASE ALFA
     Indication: PRODUCT USED FOR UNKNOWN INDICATION
     Dosage: 1MG/ML AMP*REFRIG?2.5MG/2.5ML
     Route: 055
     Dates: start: 201809
  3. BETHKIS [Concomitant]
     Active Substance: TOBRAMYCIN

REACTIONS (5)
  - Panniculitis [Unknown]
  - Cystic fibrosis [Unknown]
  - Rash [Unknown]
  - Pneumonia [Unknown]
  - Gastroenteritis viral [Unknown]

NARRATIVE: CASE EVENT DATE: 20190409
